FAERS Safety Report 4711714-8 (Version None)
Quarter: 2005Q3

REPORT INFORMATION
  Report Type: 
  Country: None (occurrence: None)
  Receive Date: 20050712
  Receipt Date: 20050207
  Transmission Date: 20060218
  Serious: Yes (Other)
  Sender: FDA-Public Use
  Company Number: PHEH2005US01779

PATIENT
  Age: 62 Year
  Sex: Male

DRUGS (7)
  1. ZOLEDRONATE [Suspect]
     Indication: METASTASES TO BONE
  2. DOXORUBICIN [Concomitant]
     Indication: CHEMOTHERAPY
  3. DEXAMETHASONE TABLETS USP (NGX) [Concomitant]
  4. RADIATION THERAPY [Concomitant]
  5. BICALUTAMIDE [Concomitant]
     Indication: CHEMOTHERAPY
  6. LEUPROLIDE ACETATE [Concomitant]
     Indication: CHEMOTHERAPY
  7. VINCRISTINE [Concomitant]
     Indication: CHEMOTHERAPY

REACTIONS (3)
  - INFECTION [None]
  - OSTEONECROSIS [None]
  - SEQUESTRECTOMY [None]
